FAERS Safety Report 8513919-7 (Version None)
Quarter: 2012Q3

REPORT INFORMATION
  Report Type: 
  Country: None (occurrence: None)
  Receive Date: 20120705
  Receipt Date: 20120626
  Transmission Date: 20120928
  Serious: Yes (Hospitalization, Other)
  Sender: FDA-Public Use
  Company Number: DSA_58186_2012

PATIENT
  Sex: Male
  Weight: 99.7913 kg

DRUGS (7)
  1. CARDIZEM [Suspect]
     Indication: HYPERTENSION
     Dosage: 240 MG, BID
     Dates: start: 20100101
  2. CARDIZEM [Suspect]
     Indication: HEART RATE
     Dosage: 240 MG, BID
     Dates: start: 20100101
  3. METOPROLOL SUCCINATE [Suspect]
     Indication: HYPERTENSION
     Dosage: 50 MG, BOD
  4. METOPROLOL SUCCINATE [Suspect]
     Indication: HEART RATE
     Dosage: 50 MG, BOD
  5. GLIPIZIDE [Concomitant]
  6. DIOVAN [Suspect]
     Indication: HYPERTENSION
     Dosage: 320 MG, QD
     Dates: start: 20100101
  7. METFORMIN HYDROCHLORIDE [Concomitant]

REACTIONS (2)
  - ATRIAL FIBRILLATION [None]
  - ATRIAL FLUTTER [None]
